FAERS Safety Report 10930853 (Version 1)
Quarter: 2015Q1

REPORT INFORMATION
  Report Type: Spontaneous
  Country: US (occurrence: US)
  Receive Date: 20150319
  Receipt Date: 20150319
  Transmission Date: 20150721
  Serious: No
  Sender: FDA-Public Use
  Company Number: US-BAUSCH-BL-2015-000710

PATIENT
  Sex: Female

DRUGS (1)
  1. TRETINOIN. [Suspect]
     Active Substance: TRETINOIN
     Indication: SKIN DEPIGMENTATION
     Dosage: 12 WEEKS AGO FOR THE TREATMENT OF ^AGE SPOTS

REACTIONS (1)
  - Drug ineffective [Not Recovered/Not Resolved]
